FAERS Safety Report 8367349-1 (Version None)
Quarter: 2012Q2

REPORT INFORMATION
  Report Type: 
  Country: None (occurrence: None)
  Receive Date: 20120517
  Receipt Date: 20120514
  Transmission Date: 20120825
  Serious: Yes (Hospitalization)
  Sender: FDA-Public Use
  Company Number: US-BAYER-201016138NA

PATIENT
  Age: 49 Year
  Sex: Female
  Weight: 73.923 kg

DRUGS (1)
  1. YASMIN [Suspect]
     Indication: CONTRACEPTION
     Dosage: UNK
     Route: 048
     Dates: start: 20050701, end: 20080307

REACTIONS (4)
  - PULMONARY EMBOLISM [None]
  - PAIN [None]
  - INJURY [None]
  - EMOTIONAL DISTRESS [None]
